FAERS Safety Report 11211434 (Version 1)
Quarter: 2015Q2

REPORT INFORMATION
  Report Type: Spontaneous
  Country: TN (occurrence: None)
  Receive Date: 20150619
  Receipt Date: 20150619
  Transmission Date: 20150821
  Serious: Yes (Other)
  Sender: FDA-Public Use
  Company Number: TN2015081821

PATIENT
  Age: 29 Year
  Sex: Female

DRUGS (5)
  1. RITONAVIR (RITONAVIR) UNKNOWN [Suspect]
     Active Substance: RITONAVIR
     Indication: HIV INFECTION
  2. LOPINAVIR (LOPINAVIR) [Suspect]
     Active Substance: LOPINAVIR
     Indication: HIV INFECTION
  3. GANCICLOVIR (GANCICLOVIR) [Concomitant]
     Active Substance: GANCICLOVIR
  4. VIREAD [Suspect]
     Active Substance: TENOFOVIR DISOPROXIL FUMARATE
     Indication: HIV INFECTION
  5. LAMIVUDINE (LAMIVUDINE) UNKNOWN [Suspect]
     Active Substance: LAMIVUDINE
     Indication: HIV INFECTION

REACTIONS (1)
  - Immune reconstitution inflammatory syndrome [None]
